FAERS Safety Report 22648000 (Version 1)
Quarter: 2023Q2

REPORT INFORMATION
  Report Type: Spontaneous
  Country: US (occurrence: US)
  Receive Date: 20230628
  Receipt Date: 20230628
  Transmission Date: 20230721
  Serious: No
  Sender: FDA-Public Use
  Company Number: US-TWI PHARMACEUTICAL, INC-2023SCTW000030

PATIENT

DRUGS (2)
  1. DEXLANSOPRAZOLE [Suspect]
     Active Substance: DEXLANSOPRAZOLE
     Indication: Gastrooesophageal reflux disease
     Dosage: UNK, OD
     Route: 048
     Dates: start: 20230605, end: 20230612
  2. CLONAZEPAM [Concomitant]
     Active Substance: CLONAZEPAM
     Indication: Sleep disorder
     Dosage: 1 DOSAGE FORM, DAILY, BEFORE BEDTIME
     Route: 065

REACTIONS (9)
  - Throat irritation [None]
  - Burning sensation [None]
  - Pain in extremity [None]
  - Eructation [None]
  - Flatulence [None]
  - Oropharyngeal pain [None]
  - Chest pain [None]
  - Pain [None]
  - Drug ineffective [Unknown]

NARRATIVE: CASE EVENT DATE: 20230605
